FAERS Safety Report 4350197-7 (Version None)
Quarter: 2004Q2

REPORT INFORMATION
  Report Type: 
  Country: None (occurrence: None)
  Receive Date: 20040426
  Receipt Date: 20040415
  Transmission Date: 20050107
  Serious: Yes (Hospitalization)
  Sender: FDA-Public Use
  Company Number: 2004-04-0755

PATIENT
  Sex: Male

DRUGS (1)
  1. NITROGLICERINA      LIKE  NITRO-DUR [Suspect]

REACTIONS (1)
  - DERMATITIS BULLOUS [None]
